FAERS Safety Report 12538226 (Version 3)
Quarter: 2017Q4

REPORT INFORMATION
  Report Type: Spontaneous
  Country: FR (occurrence: FR)
  Receive Date: 20160707
  Receipt Date: 20171004
  Transmission Date: 20180320
  Serious: Yes (Life-Threatening, Hospitalization, Other)
  Sender: FDA-Public Use
  Company Number: FR-FRI-1000085907

PATIENT
  Age: 55 Year
  Sex: Female

DRUGS (5)
  1. THERALENE [Suspect]
     Active Substance: TRIMEPRAZINE
     Indication: CHILDHOOD PSYCHOSIS
     Dosage: 20 GTT, QHS IF NEEDED
     Route: 065
     Dates: start: 201212
  2. RISPERDAL CONSTA [Suspect]
     Active Substance: RISPERIDONE
     Indication: CHILDHOOD PSYCHOSIS
     Dosage: 50 MG, SINGLE (Q2WEEKS)
     Route: 030
     Dates: start: 201212, end: 201212
  3. ESCITALOPRAM OXALATE - BP [Suspect]
     Active Substance: ESCITALOPRAM OXALATE
     Indication: CHILDHOOD PSYCHOSIS
     Dosage: 20 MG, QD
     Route: 048
     Dates: start: 201212, end: 20130124
  4. CLOZAPINE. [Suspect]
     Active Substance: CLOZAPINE
     Indication: PRODUCT USED FOR UNKNOWN INDICATION
     Dosage: UNK
     Route: 065
     Dates: end: 201302
  5. SERESTA [Suspect]
     Active Substance: OXAZEPAM
     Indication: CHILDHOOD PSYCHOSIS
     Dosage: 10 MG, QD
     Route: 065
     Dates: start: 201212

REACTIONS (18)
  - Status epilepticus [Recovering/Resolving]
  - Tremor [Recovering/Resolving]
  - Loss of consciousness [Recovering/Resolving]
  - Muscle rigidity [Recovering/Resolving]
  - Drug interaction [Unknown]
  - Off label use [Unknown]
  - Agitation [Recovering/Resolving]
  - Apnoea [Recovering/Resolving]
  - Myoclonus [Recovering/Resolving]
  - Salivary hypersecretion [Recovering/Resolving]
  - Clonus [Recovering/Resolving]
  - Hypertonia [Recovering/Resolving]
  - Pulmonary embolism [Recovering/Resolving]
  - Coma [Recovering/Resolving]
  - Pyrexia [Recovering/Resolving]
  - Hyperhidrosis [Recovering/Resolving]
  - Neuroleptic malignant syndrome [Recovering/Resolving]
  - Disease recurrence [Recovered/Resolved]

NARRATIVE: CASE EVENT DATE: 201212
